FAERS Safety Report 16465014 (Version 1)
Quarter: 2019Q2

REPORT INFORMATION
  Report Type: Spontaneous
  Country: CN (occurrence: CN)
  Receive Date: 20190621
  Receipt Date: 20190621
  Transmission Date: 20190711
  Serious: Yes (Other)
  Sender: FDA-Public Use
  Company Number: CN-BAYER-2019-114252

PATIENT
  Age: 67 Year
  Sex: Male

DRUGS (1)
  1. STIVARGA [Suspect]
     Active Substance: REGORAFENIB
     Indication: HEPATIC CANCER
     Dosage: 4 DF, QD
     Route: 048

REACTIONS (6)
  - Decreased appetite [None]
  - Skin disorder [None]
  - Weight decreased [None]
  - Transaminases increased [None]
  - Cachexia [None]
  - Nausea [None]
